FAERS Safety Report 8756687 (Version 5)
Quarter: 2013Q3

REPORT INFORMATION
  Report Type: Report from Study
  Country: CN (occurrence: CN)
  Receive Date: 20120828
  Receipt Date: 20130828
  Transmission Date: 20140515
  Serious: Yes (Death, Hospitalization)
  Sender: FDA-Public Use
  Company Number: CN-CELGENEUS-035-C5013-12081843

PATIENT
  Age: 78 Year
  Sex: Male
  Weight: 42 kg

DRUGS (5)
  1. CC-5013 [Suspect]
     Indication: PLASMA CELL MYELOMA
     Dosage: 10 MILLIGRAM
     Route: 048
     Dates: start: 20101109, end: 20120531
  2. DEXAMETHASONE [Suspect]
     Indication: PLASMA CELL MYELOMA
     Dosage: 20 MILLIGRAM
     Route: 065
     Dates: start: 20101109, end: 20120531
  3. THALIDOMIDE CELGENE [Suspect]
     Indication: PLASMA CELL MYELOMA
     Route: 048
     Dates: start: 201007, end: 201007
  4. ASPIRINE [Concomitant]
     Indication: THROMBOSIS PROPHYLAXIS
     Dosage: 100 MILLIGRAM
     Route: 048
     Dates: start: 20101109, end: 20120531
  5. OMEPRAZOLE [Concomitant]
     Indication: GASTRITIS PROPHYLAXIS
     Route: 048
     Dates: start: 20101109, end: 20120531

REACTIONS (2)
  - Duodenal neoplasm [Recovered/Resolved with Sequelae]
  - Plasma cell myeloma [Fatal]
